FAERS Safety Report 6426323-2 (Version None)
Quarter: 2009Q4

REPORT INFORMATION
  Report Type: 
  Country: None (occurrence: None)
  Receive Date: 20091104
  Receipt Date: 20091029
  Transmission Date: 20100525
  Serious: Yes (Hospitalization)
  Sender: FDA-Public Use
  Company Number: FR-ASTRAZENECA-2009SE23490

PATIENT
  Age: 86 Year
  Sex: Female

DRUGS (5)
  1. NEXIUM [Suspect]
     Indication: HIATUS HERNIA
     Route: 048
     Dates: start: 20090701, end: 20090812
  2. NEXIUM [Suspect]
     Route: 048
  3. TRIATEC [Concomitant]
  4. CARDENSIEL [Concomitant]
  5. KARDEGIC [Concomitant]

REACTIONS (3)
  - ACUTE PULMONARY OEDEMA [None]
  - BLOOD SODIUM DECREASED [None]
  - HYPERTENSION [None]
